FAERS Safety Report 5721381-2 (Version None)
Quarter: 2008Q2

REPORT INFORMATION
  Report Type: 
  Country: None (occurrence: None)
  Receive Date: 20080429
  Receipt Date: 20080422
  Transmission Date: 20081010
  Serious: Yes (Life-Threatening)
  Sender: FDA-Public Use
  Company Number: US-NOVOPROD-274494

PATIENT
  Age: 66 Year
  Sex: Male
  Weight: 106.58 kg

DRUGS (3)
  1. NOVOLOG [Suspect]
     Indication: INSULIN-REQUIRING TYPE 2 DIABETES MELLITUS
     Route: 058
     Dates: start: 20080417, end: 20080417
  2. NOVOLIN N [Concomitant]
     Indication: INSULIN-REQUIRING TYPE 2 DIABETES MELLITUS
     Dosage: 55 IU, BID
     Route: 058
     Dates: start: 20050101
  3. NOVOLIN R [Concomitant]
     Indication: INSULIN-REQUIRING TYPE 2 DIABETES MELLITUS
     Dosage: UNK, BID SLIDING SCALE
     Route: 058
     Dates: start: 20050101

REACTIONS (3)
  - DIZZINESS [None]
  - HEADACHE [None]
  - LOSS OF CONSCIOUSNESS [None]
